FAERS Safety Report 7828917-6 (Version None)
Quarter: 2011Q4

REPORT INFORMATION
  Report Type: 
  Country: None (occurrence: None)
  Receive Date: 20111020
  Receipt Date: 20111017
  Transmission Date: 20120403
  Serious: Yes (Death)
  Sender: FDA-Public Use
  Company Number: US-ASTRAZENECA-2010SE15877

PATIENT
  Age: 65 Year
  Sex: Female

DRUGS (9)
  1. RISPERDAL [Concomitant]
     Dates: start: 20031001
  2. PHENYTOIN SODIUM [Concomitant]
     Dates: start: 20030610
  3. PREVACID [Concomitant]
     Dates: start: 20030610
  4. HALOPERIDOL [Concomitant]
     Dates: start: 20030318
  5. HYDROCHLOROTHIAZIDE [Concomitant]
     Dates: start: 20030422
  6. PRILOSEC [Concomitant]
     Dates: start: 20030512
  7. SYNTHROID [Concomitant]
     Dates: start: 20030512
  8. CARTIA XT [Concomitant]
     Dates: start: 20030610
  9. SEROQUEL [Suspect]
     Route: 048
     Dates: start: 20030528

REACTIONS (4)
  - CARDIAC ARREST [None]
  - SEPSIS [None]
  - ACUTE RESPIRATORY FAILURE [None]
  - PNEUMONIA [None]
